FAERS Safety Report 5893883-X (Version None)
Quarter: 2008Q3

REPORT INFORMATION
  Report Type: 
  Country: None (occurrence: None)
  Receive Date: 20080923
  Receipt Date: 20080122
  Transmission Date: 20090109
  Serious: No
  Sender: FDA-Public Use
  Company Number: US-ASTRAZENECA-2007UW27332

PATIENT
  Age: 14 Year
  Sex: Male
  Weight: 115 kg

DRUGS (1)
  1. SEROQUEL [Suspect]
     Indication: DEPRESSION
     Dosage: 50 MG, 100 MG, 150 MG
     Route: 048
     Dates: start: 20040101, end: 20050101

REACTIONS (2)
  - DIABETES MELLITUS [None]
  - LIMB OPERATION [None]
